FAERS Safety Report 5498609-X (Version None)
Quarter: 2007Q4

REPORT INFORMATION
  Report Type: 
  Country: None (occurrence: None)
  Receive Date: 20071026
  Receipt Date: 20071018
  Transmission Date: 20080405
  Serious: Yes (Hospitalization, Other)
  Sender: FDA-Public Use
  Company Number: DE-JNJFOC-20071003794

PATIENT
  Age: 51 Year
  Sex: Male
  Weight: 86 kg

DRUGS (5)
  1. REMICADE [Suspect]
     Indication: PSORIATIC ARTHROPATHY
     Route: 042
  2. ARCOXIA [Concomitant]
     Indication: PSORIATIC ARTHROPATHY
  3. MYDOCALM [Concomitant]
     Indication: PSORIATIC ARTHROPATHY
  4. LYRICA [Concomitant]
     Indication: PSORIATIC ARTHROPATHY
     Dosage: 75-150 MG TWICE DAILY
  5. FENTANYL [Concomitant]
     Indication: PSORIATIC ARTHROPATHY
     Route: 062

REACTIONS (3)
  - ARTHRALGIA [None]
  - PAIN [None]
  - TUBERCULOSIS [None]
